FAERS Safety Report 4746988-0 (Version None)
Quarter: 2005Q3

REPORT INFORMATION
  Report Type: 
  Country: None (occurrence: None)
  Receive Date: 20050817
  Receipt Date: 20050802
  Transmission Date: 20060218
  Serious: Yes (Other)
  Sender: FDA-Public Use
  Company Number: JP-JNJFOC-20050803667

PATIENT
  Age: 63 Year
  Sex: Male

DRUGS (2)
  1. ITRIZOLE [Suspect]
     Indication: ONYCHOMYCOSIS
     Route: 048
  2. TOCOPHEROL ACETATE [Concomitant]

REACTIONS (1)
  - CEREBRAL INFARCTION [None]
